FAERS Safety Report 6696869-0 (Version None)
Quarter: 2010Q2

REPORT INFORMATION
  Report Type: 
  Country: None (occurrence: None)
  Receive Date: 20100422
  Receipt Date: 20100412
  Transmission Date: 20101027
  Serious: Yes (Hospitalization)
  Sender: FDA-Public Use
  Company Number: TCI2010A01379

PATIENT
  Age: 72 Year
  Sex: Female

DRUGS (1)
  1. LANSOPRAZOLE [Suspect]
     Dosage: PER ORAL
     Route: 048
     Dates: start: 20081201

REACTIONS (4)
  - COLITIS COLLAGENOUS [None]
  - CONDITION AGGRAVATED [None]
  - HYPOPROTEINAEMIA [None]
  - PROTEIN-LOSING GASTROENTEROPATHY [None]
